FAERS Safety Report 4411794-3 (Version None)
Quarter: 2004Q3

REPORT INFORMATION
  Report Type: 
  Country: None (occurrence: None)
  Receive Date: 20040729
  Receipt Date: 20040729
  Transmission Date: 20050211
  Serious: Yes (Other)
  Sender: FDA-Public Use
  Company Number: None

PATIENT
  Age: 36 Year
  Sex: Female
  Weight: 66.6788 kg

DRUGS (1)
  1. DEXFERRUM [Suspect]
     Indication: ANAEMIA
     Dosage: 1700 MG IV X 1 DOSE
     Route: 042
     Dates: start: 20040713

REACTIONS (4)
  - ERYTHEMA [None]
  - LOCAL SWELLING [None]
  - PARAESTHESIA ORAL [None]
  - PRURITUS [None]
